FAERS Safety Report 13857543 (Version 1)
Quarter: 2017Q3

REPORT INFORMATION
  Report Type: Spontaneous
  Country: DE (occurrence: DE)
  Receive Date: 20170811
  Receipt Date: 20170811
  Transmission Date: 20171127
  Serious: Yes (Other)
  Sender: FDA-Public Use
  Company Number: PHHY2017DE116217

PATIENT
  Sex: Male
  Weight: 2.34 kg

DRUGS (10)
  1. BETAMETHASONE. [Suspect]
     Active Substance: BETAMETHASONE
     Indication: FOETAL EXPOSURE DURING PREGNANCY
     Route: 064
  2. AMLODIPINE [Suspect]
     Active Substance: AMLODIPINE BESYLATE
     Indication: FOETAL EXPOSURE DURING PREGNANCY
     Route: 064
  3. AMPICILLINE (AMPICILLIN SODIUM) [Suspect]
     Active Substance: AMPICILLIN SODIUM
     Indication: FOETAL EXPOSURE DURING PREGNANCY
     Route: 064
  4. LEVOTHYROXINE SODIUM. [Suspect]
     Active Substance: LEVOTHYROXINE SODIUM
     Indication: FOETAL EXPOSURE DURING PREGNANCY
     Route: 064
  5. FENOTEROL [Suspect]
     Active Substance: FENOTEROL
     Indication: FOETAL EXPOSURE DURING PREGNANCY
     Route: 064
  6. TACROLIMUS. [Suspect]
     Active Substance: TACROLIMUS
     Indication: FOETAL EXPOSURE DURING PREGNANCY
     Route: 064
  7. NIFEDIPINE. [Suspect]
     Active Substance: NIFEDIPINE
     Indication: FOETAL EXPOSURE DURING PREGNANCY
     Route: 064
  8. AZATHIOPRINE. [Suspect]
     Active Substance: AZATHIOPRINE
     Indication: FOETAL EXPOSURE DURING PREGNANCY
     Route: 064
  9. METOPROLOL. [Suspect]
     Active Substance: METOPROLOL
     Indication: FOETAL EXPOSURE DURING PREGNANCY
     Route: 064
  10. METHYLDOPA. [Suspect]
     Active Substance: METHYLDOPA
     Indication: FOETAL EXPOSURE DURING PREGNANCY
     Dosage: MATERNAL DOSE: 500 MG, QD
     Route: 064

REACTIONS (6)
  - Congenital cystic lung [None]
  - Hydrops foetalis [None]
  - Maternal drugs affecting foetus [None]
  - Premature baby [Unknown]
  - Foetal exposure during pregnancy [Unknown]
  - Respiratory failure [None]
